FAERS Safety Report 5721613-0 (Version None)
Quarter: 2008Q2

REPORT INFORMATION
  Report Type: 
  Country: None (occurrence: None)
  Receive Date: 20080429
  Receipt Date: 20070319
  Transmission Date: 20081010
  Serious: No
  Sender: FDA-Public Use
  Company Number: US-ASTRAZENECA-2007UW05363

PATIENT
  Age: 74 Year
  Sex: Female
  Weight: 90.7 kg

DRUGS (8)
  1. NEXIUM [Suspect]
     Indication: GASTROOESOPHAGEAL REFLUX DISEASE
     Route: 048
  2. DIGOXIN [Concomitant]
  3. WARFARIN SODIUM [Concomitant]
  4. LIPITOR [Concomitant]
  5. FOLIC ACID [Concomitant]
  6. NORVASC [Concomitant]
  7. AMOROLIPID [Concomitant]
  8. DIABETIC [Concomitant]

REACTIONS (1)
  - BLOOD GLUCOSE INCREASED [None]
